FAERS Safety Report 23876568 (Version 1)
Quarter: 2024Q2

REPORT INFORMATION
  Report Type: Spontaneous
  Country: US (occurrence: US)
  Receive Date: 20240521
  Receipt Date: 20240521
  Transmission Date: 20240716
  Serious: Yes (Other)
  Sender: FDA-Public Use
  Company Number: US-ABBVIE-5764424

PATIENT
  Sex: Male
  Weight: 79.378 kg

DRUGS (9)
  1. ALPHAGAN P [Suspect]
     Active Substance: BRIMONIDINE TARTRATE
     Indication: Glaucoma
     Dosage: FORM STRENGTH: 1.5 MILLIGRAM/MILLILITERS?FREQUENCY TEXT: ONE DROP IN EACH EYE IN THE MORNING?STAR...
     Route: 047
  2. IBUPROFEN [Concomitant]
     Active Substance: IBUPROFEN
     Indication: Arthritis
  3. HYDROCHLOROTHIAZIDE [Concomitant]
     Active Substance: HYDROCHLOROTHIAZIDE
     Indication: Fluid retention
     Dosage: FORM STRENGTH: 25 MILLIGRAMS
  4. CELEBREX [Concomitant]
     Active Substance: CELECOXIB
     Indication: Arthritis
     Dosage: STOP DATE TEXT: COMPLETED
  5. TYLENOL [Concomitant]
     Active Substance: ACETAMINOPHEN
     Indication: Arthritis
  6. CRESTOR [Concomitant]
     Active Substance: ROSUVASTATIN CALCIUM
     Indication: Blood cholesterol increased
     Dosage: FORM STRENGTH: 25 MILLIGRAMS
  7. DAYPRO [Concomitant]
     Active Substance: OXAPROZIN
     Indication: Arthritis
     Dosage: STOP DATE TEXT: COMPLETED
  8. CORTISONE [Concomitant]
     Active Substance: CORTISONE
     Indication: Osteoarthritis
     Dosage: STOP DATE TEXT: COMPLETED
  9. LISINOPRIL [Concomitant]
     Active Substance: LISINOPRIL
     Indication: Hypertension
     Dosage: FORM STRENGTH: 20 MILLIGRAMS

REACTIONS (2)
  - Osteoarthritis [Recovering/Resolving]
  - Chondropathy [Not Recovered/Not Resolved]

NARRATIVE: CASE EVENT DATE: 20220101
